FAERS Safety Report 4269834-0 (Version None)
Quarter: 2004Q1

REPORT INFORMATION
  Report Type: 
  Country: None (occurrence: None)
  Receive Date: 20040112
  Receipt Date: 20031231
  Transmission Date: 20041129
  Serious: Yes (Hospitalization)
  Sender: FDA-Public Use
  Company Number: HQWYE028805JAN04

PATIENT
  Age: 34 Year
  Sex: Female
  Weight: 52.21 kg

DRUGS (9)
  1. EFFEXOR XR [Suspect]
     Indication: BIPOLAR DISORDER
     Dosage: 75 MG 1X PER 1 DAY, ORAL
     Route: 048
     Dates: end: 20031101
  2. EFFEXOR XR [Suspect]
     Indication: DEPRESSION
     Dosage: 75 MG 1X PER 1 DAY, ORAL
     Route: 048
     Dates: end: 20031101
  3. EFFEXOR XR [Suspect]
     Indication: BIPOLAR DISORDER
     Dosage: 75 MG 1X PER 1 DAY, ORAL
     Route: 048
     Dates: start: 20030101
  4. EFFEXOR XR [Suspect]
     Indication: DEPRESSION
     Dosage: 75 MG 1X PER 1 DAY, ORAL
     Route: 048
     Dates: start: 20030101
  5. KLONOPIN [Suspect]
     Indication: BIPOLAR DISORDER
     Dosage: UNKNOWN; 1 MG 3X PER 1 DAY
     Dates: end: 20031101
  6. KLONOPIN [Suspect]
     Indication: BIPOLAR DISORDER
     Dosage: UNKNOWN; 1 MG 3X PER 1 DAY
     Dates: start: 20030101
  7. LITHIUM CARBONATE [Suspect]
     Dosage: OVERDOSE AMOUNT 30-40 LITHIUM TABLETS
     Dates: start: 20030101, end: 20030101
  8. ZYPREXA [Suspect]
     Indication: BIPOLAR DISORDER
     Dosage: UNKNOWN; 15 MG 1X PER 1 DAY
     Dates: end: 20031101
  9. ZYPREXA [Suspect]
     Indication: BIPOLAR DISORDER
     Dosage: UNKNOWN; 15 MG 1X PER 1 DAY
     Dates: start: 20030101

REACTIONS (5)
  - DRUG EXPOSURE DURING PREGNANCY [None]
  - DRUG WITHDRAWAL SYNDROME [None]
  - MEDICATION ERROR [None]
  - PREGNANCY [None]
  - SUICIDE ATTEMPT [None]
